FAERS Safety Report 15877205 (Version 1)
Quarter: 2019Q1

REPORT INFORMATION
  Report Type: Spontaneous
  Country: US (occurrence: US)
  Receive Date: 20190128
  Receipt Date: 20190128
  Transmission Date: 20190417
  Serious: No
  Sender: FDA-Public Use
  Company Number: US-SA-2019SA016384

PATIENT
  Age: 76 Year
  Sex: Female

DRUGS (3)
  1. METFORMIN [Concomitant]
     Active Substance: METFORMIN HYDROCHLORIDE
     Dosage: UNK UNK, UNK
  2. TOUJEO [Suspect]
     Active Substance: INSULIN GLARGINE
     Indication: TYPE 2 DIABETES MELLITUS
     Dosage: 7 U, QD
     Route: 065
     Dates: start: 20190109
  3. NOVOLOG [Concomitant]
     Active Substance: INSULIN ASPART
     Dosage: UNK UNK, UNK

REACTIONS (6)
  - Blood glucose fluctuation [Unknown]
  - Pain in extremity [Unknown]
  - Blood pressure increased [Unknown]
  - Middle insomnia [Unknown]
  - Blood glucose increased [Unknown]
  - Expired product administered [Unknown]
